APPROVED DRUG PRODUCT: COPAXONE
Active Ingredient: GLATIRAMER ACETATE
Strength: 20MG/VIAL
Dosage Form/Route: FOR SOLUTION;SUBCUTANEOUS
Application: N020622 | Product #001
Applicant: TEVA PHARMACEUTICALS USA
Approved: Dec 20, 1996 | RLD: Yes | RS: No | Type: DISCN